FAERS Safety Report 24751733 (Version 3)
Quarter: 2025Q1

REPORT INFORMATION
  Report Type: Spontaneous
  Country: DE (occurrence: DE)
  Receive Date: 20241219
  Receipt Date: 20250204
  Transmission Date: 20250408
  Serious: Yes (Other)
  Sender: AZURITY PHARMACEUTICALS
  Company Number: DE-AZURITY PHARMACEUTICALS, INC.-AZR202412-001319

PATIENT
  Age: 63 Year
  Sex: Male

DRUGS (2)
  1. TRIPTORELIN [Suspect]
     Active Substance: TRIPTORELIN
     Indication: Paraphilia
     Route: 030
  2. RISEDRONATE SODIUM [Concomitant]
     Active Substance: RISEDRONATE SODIUM
     Indication: Osteoporosis
     Dosage: 35 MILLIGRAM(S), IN 1 WEEK
     Route: 065

REACTIONS (2)
  - Retroperitoneal fibrosis [Not Recovered/Not Resolved]
  - Aortic aneurysm rupture [Unknown]

NARRATIVE: CASE EVENT DATE: 20240901
